FAERS Safety Report 8082794-X (Version None)
Quarter: 2012Q1

REPORT INFORMATION
  Report Type: 
  Country: None (occurrence: None)
  Receive Date: 20120127
  Receipt Date: 20110210
  Transmission Date: 20120608
  Serious: No
  Sender: FDA-Public Use
  Company Number: US-ABBOTT-11P-163-0705061-00

PATIENT
  Sex: Female
  Weight: 53.118 kg

DRUGS (3)
  1. THYROID TAB [Concomitant]
     Indication: THYROID DISORDER
     Dates: start: 19820101
  2. HUMIRA [Suspect]
     Indication: PSORIASIS
  3. HUMIRA [Suspect]
     Indication: RHEUMATOID ARTHRITIS
     Route: 058
     Dates: start: 20090101, end: 20101223

REACTIONS (7)
  - TOOTH INJURY [None]
  - ARTHRALGIA [None]
  - VISUAL IMPAIRMENT [None]
  - TOOTH INFECTION [None]
  - CATARACT [None]
  - GAIT DISTURBANCE [None]
  - TOOTHACHE [None]
